FAERS Safety Report 15922844 (Version 3)
Quarter: 2020Q2

REPORT INFORMATION
  Report Type: Spontaneous
  Country: CN (occurrence: CN)
  Receive Date: 20190206
  Receipt Date: 20200515
  Transmission Date: 20200713
  Serious: No
  Sender: FDA-Public Use
  Company Number: CN-ROCHE-2254514

PATIENT
  Age: 37 Year
  Sex: Female

DRUGS (1)
  1. TAMIFLU [Suspect]
     Active Substance: OSELTAMIVIR PHOSPHATE
     Indication: INFLUENZA
     Route: 048
     Dates: start: 20190126

REACTIONS (2)
  - Chromaturia [Not Recovered/Not Resolved]
  - Maternal exposure during pregnancy [Unknown]

NARRATIVE: CASE EVENT DATE: 20190128
